FAERS Safety Report 12336277 (Version 5)
Quarter: 2016Q2

REPORT INFORMATION
  Report Type: Report from Study
  Country: JP (occurrence: JP)
  Receive Date: 20160505
  Receipt Date: 20160616
  Transmission Date: 20160815
  Serious: Yes (Death, Hospitalization, Other)
  Sender: FDA-Public Use
  Company Number: JP-BRISTOL-MYERS SQUIBB COMPANY-BMS-2016-034934

PATIENT
  Age: 59 Year
  Sex: Male

DRUGS (3)
  1. NIVOLUMAB [Suspect]
     Active Substance: NIVOLUMAB
     Dosage: 200 MG/KG, UNK
     Route: 041
     Dates: start: 20160428, end: 20160428
  2. NIVOLUMAB [Suspect]
     Active Substance: NIVOLUMAB
     Indication: NON-SMALL CELL LUNG CANCER
     Dosage: 200 MG, UNK
     Route: 041
     Dates: start: 20160330, end: 20160330
  3. NIVOLUMAB [Suspect]
     Active Substance: NIVOLUMAB
     Dosage: 200 MG/KG, UNK
     Route: 041
     Dates: start: 20160512, end: 20160512

REACTIONS (4)
  - C-reactive protein increased [Unknown]
  - Haemoptysis [Fatal]
  - Pneumonia aspiration [Recovered/Resolved]
  - Oesophagobronchial fistula [Recovering/Resolving]

NARRATIVE: CASE EVENT DATE: 201604
